FAERS Safety Report 20844008 (Version 1)
Quarter: 2022Q2

REPORT INFORMATION
  Report Type: Spontaneous
  Country: US (occurrence: US)
  Receive Date: 20220518
  Receipt Date: 20220518
  Transmission Date: 20220721
  Serious: No
  Sender: FDA-Public Use
  Company Number: US-PFIZER INC-202200687773

PATIENT
  Age: 70 Year
  Sex: Female
  Weight: 72.57 kg

DRUGS (1)
  1. PAXLOVID [Suspect]
     Active Substance: NIRMATRELVIR\RITONAVIR
     Indication: COVID-19 treatment
     Dosage: UNK (2 PACKS OF TABLETS IN MORNING, 2 IN AFTERNOON, EACH WITH 3 TABLETS; 30 TABLETS TOTAL)
     Dates: start: 20220503, end: 20220508

REACTIONS (9)
  - Chest discomfort [Unknown]
  - Dysphonia [Unknown]
  - Diarrhoea [Unknown]
  - Rhinorrhoea [Not Recovered/Not Resolved]
  - Oropharyngeal discomfort [Not Recovered/Not Resolved]
  - Symptom recurrence [Not Recovered/Not Resolved]
  - Vomiting [Unknown]
  - Rash [Recovering/Resolving]
  - Weight increased [Unknown]
